FAERS Safety Report 21577056 (Version 1)
Quarter: 2022Q4

REPORT INFORMATION
  Report Type: Spontaneous
  Country: CA (occurrence: CA)
  Receive Date: 20221110
  Receipt Date: 20221110
  Transmission Date: 20230113
  Serious: Yes (Other)
  Sender: FDA-Public Use
  Company Number: None

PATIENT
  Age: 4 Decade
  Sex: Female

DRUGS (1)
  1. METHOTREXATE [Suspect]
     Active Substance: METHOTREXATE
     Indication: Corneal epithelial downgrowth
     Dosage: 1 EVERY 1 WEEKS
     Route: 031

REACTIONS (4)
  - Glaucoma [Unknown]
  - Hypotony of eye [Unknown]
  - Keratopathy [Unknown]
  - Retinal detachment [Unknown]
